FAERS Safety Report 25567553 (Version 1)
Quarter: 2025Q3

REPORT INFORMATION
  Report Type: Spontaneous
  Country: US (occurrence: US)
  Receive Date: 20250716
  Receipt Date: 20250716
  Transmission Date: 20251021
  Serious: No
  Sender: FENNEC PHARMACEUTICALS
  Company Number: US-FENNEC PHARMACEUTICALS, INC.-2025FEN00039

PATIENT
  Age: 20 Year
  Sex: Female

DRUGS (2)
  1. PEDMARK [Suspect]
     Active Substance: SODIUM THIOSULFATE
     Route: 042
  2. UNSPECIFIED PREMEDS [Concomitant]

REACTIONS (8)
  - Tremor [Unknown]
  - Neuralgia [Unknown]
  - Pruritus [Unknown]
  - Sensation of foreign body [Unknown]
  - Throat irritation [Unknown]
  - Nausea [Unknown]
  - Vomiting [Unknown]
  - Off label use [Recovered/Resolved]

NARRATIVE: CASE EVENT DATE: 20250324
